FAERS Safety Report 14813228 (Version 1)
Quarter: 2018Q2

REPORT INFORMATION
  Report Type: Report from Study
  Country: US (occurrence: US)
  Receive Date: 20180426
  Receipt Date: 20180426
  Transmission Date: 20180711
  Serious: Yes (Death, Hospitalization, Other)
  Sender: FDA-Public Use
  Company Number: US-TAKEDA-2018TUS012530

PATIENT
  Sex: Male
  Weight: 74.83 kg

DRUGS (1)
  1. FEBUXOSTAT. [Suspect]
     Active Substance: FEBUXOSTAT
     Indication: HYPERURICAEMIA
     Dosage: UNK UNK, QD
     Route: 048

REACTIONS (3)
  - Cardiac failure congestive [Fatal]
  - Renal failure [Fatal]
  - Fall [Unknown]

NARRATIVE: CASE EVENT DATE: 20180404
